FAERS Safety Report 4336339-8 (Version None)
Quarter: 2004Q2

REPORT INFORMATION
  Report Type: 
  Country: None (occurrence: None)
  Receive Date: 20040407
  Receipt Date: 20040323
  Transmission Date: 20050107
  Serious: Yes (Other)
  Sender: FDA-Public Use
  Company Number: 2004-113002-NL

PATIENT
  Age: 21 Year
  Sex: Female
  Weight: 45.5 kg

DRUGS (2)
  1. NUVARING [Suspect]
     Indication: CONTRACEPTION
     Dosage: VAGINAL
     Route: 067
     Dates: start: 20040101, end: 20040211
  2. FIORICET [Concomitant]

REACTIONS (9)
  - EPISTAXIS [None]
  - FEELING ABNORMAL [None]
  - HAEMATURIA [None]
  - HAEMOPTYSIS [None]
  - HAEMORRHAGE [None]
  - METRORRHAGIA [None]
  - MUSCLE CRAMP [None]
  - TENSION HEADACHE [None]
  - THROMBOSIS [None]
